FAERS Safety Report 16629184 (Version 1)
Quarter: 2019Q3

REPORT INFORMATION
  Report Type: Spontaneous
  Country: US (occurrence: US)
  Receive Date: 20190612
  Receipt Date: 20190612
  Transmission Date: 20191004
  Serious: Yes (Hospitalization)
  Sender: FDA-Public Use
  Company Number: None

PATIENT
  Age: 55 Year
  Sex: Female
  Weight: 57.1 kg

DRUGS (11)
  1. CETRIZINE [Concomitant]
     Active Substance: CETIRIZINE HYDROCHLORIDE
  2. HYDROCHLOROTHIAZIDE. [Concomitant]
     Active Substance: HYDROCHLOROTHIAZIDE
  3. POTASSIUM CHLORIDE. [Concomitant]
     Active Substance: POTASSIUM CHLORIDE
  4. BETAMETHASONE. [Concomitant]
     Active Substance: BETAMETHASONE
  5. HYDROXYZINE [Concomitant]
     Active Substance: HYDROXYZINE HYDROCHLORIDE
  6. PREDNISONE. [Concomitant]
     Active Substance: PREDNISONE
  7. PROCHLORPERAZINE. [Concomitant]
     Active Substance: PROCHLORPERAZINE
  8. PEMBROLIZUMAB  200MG [Suspect]
     Active Substance: PEMBROLIZUMAB
     Indication: ANAL CANCER
     Dosage: ?          OTHER FREQUENCY:EVERY 3 WEEKS;?
     Route: 042
  9. ALBUTEROL. [Concomitant]
     Active Substance: ALBUTEROL
  10. BUPROPION. [Concomitant]
     Active Substance: BUPROPION
  11. ONDANSETRON [Concomitant]
     Active Substance: ONDANSETRON

REACTIONS (1)
  - Embolism [None]

NARRATIVE: CASE EVENT DATE: 20190610
